FAERS Safety Report 5166061-X (Version None)
Quarter: 2006Q4

REPORT INFORMATION
  Report Type: 
  Country: None (occurrence: None)
  Receive Date: 20061128
  Receipt Date: 20061117
  Transmission Date: 20070319
  Serious: Yes (Hospitalization)
  Sender: FDA-Public Use
  Company Number: 2006105903

PATIENT
  Age: 54 Year
  Sex: Female
  Weight: 69.8539 kg

DRUGS (6)
  1. SUTENT [Suspect]
     Indication: RENAL CELL CARCINOMA STAGE UNSPECIFIED
     Dosage: 37.5 MG (37.5 MG, 1 IN 1 D); ORAL
     Route: 048
     Dates: start: 20060801, end: 20060828
  2. IRESSA [Suspect]
     Indication: RENAL CELL CARCINOMA STAGE UNSPECIFIED
     Dosage: 250 MG (250 MG, 1 IN 1 D); ORAL
     Route: 048
     Dates: start: 20060801, end: 20060831
  3. AMILORIDE HYDROCHLORIDE [Concomitant]
  4. GLIPIZIDE [Concomitant]
  5. PROCARDIA [Concomitant]
  6. ZOLOFT [Concomitant]

REACTIONS (4)
  - DRUG TOXICITY [None]
  - PALPITATIONS [None]
  - VENTRICULAR HYPERTROPHY [None]
  - VENTRICULAR TACHYCARDIA [None]
